FAERS Safety Report 8317108-0 (Version None)
Quarter: 2012Q2

REPORT INFORMATION
  Report Type: 
  Country: None (occurrence: None)
  Receive Date: 20120425
  Receipt Date: 20120416
  Transmission Date: 20120825
  Serious: Yes (Other)
  Sender: FDA-Public Use
  Company Number: AUR-APL-2012-01852

PATIENT

DRUGS (1)
  1. PAROXETINE HCL [Suspect]
     Indication: DEPRESSION

REACTIONS (2)
  - BRUGADA SYNDROME [None]
  - ARRHYTHMIA [None]
